FAERS Safety Report 6840112-6 (Version None)
Quarter: 2010Q3

REPORT INFORMATION
  Report Type: 
  Country: None (occurrence: None)
  Receive Date: 20100713
  Receipt Date: 20100713
  Transmission Date: 20110219
  Serious: Yes (Hospitalization)
  Sender: FDA-Public Use
  Company Number: None

PATIENT
  Sex: Male

DRUGS (2)
  1. SUTENT [Suspect]
     Dosage: 50 MG QD FOR 1 WK ON PO 1 WEEK OFF THEN REPEAT
     Route: 048
     Dates: start: 20091229
  2. SUTENT [Suspect]
     Dosage: 50 MG QD FOR 1 WK ON PO 1 WEEK OFF THEN REPEAT
     Route: 048
     Dates: start: 20100518

REACTIONS (1)
  - ANAPHYLACTIC REACTION [None]
